FAERS Safety Report 23196970 (Version 1)
Quarter: 2023Q4

REPORT INFORMATION
  Report Type: Spontaneous
  Country: US (occurrence: None)
  Receive Date: 20231116
  Receipt Date: 20231116
  Transmission Date: 20240110
  Serious: Yes (Hospitalization)
  Sender: FDA-Public Use
  Company Number: None

PATIENT
  Age: 54 Year
  Sex: Female
  Weight: 104.4 kg

DRUGS (6)
  1. VEOZAH [Suspect]
     Active Substance: FEZOLINETANT
     Indication: Hot flush
     Dosage: 30 TABLETS DAILY ORAL?
     Route: 048
     Dates: start: 20231108, end: 20231109
  2. Lisinopral [Concomitant]
  3. XELJANZ [Concomitant]
     Active Substance: TOFACITINIB CITRATE
  4. VITAMIN D [Concomitant]
     Active Substance: VITAMIN D NOS
  5. VITAMIN B [Concomitant]
     Active Substance: VITAMIN B
  6. MAGNESIUM [Concomitant]
     Active Substance: MAGNESIUM

REACTIONS (5)
  - Presyncope [None]
  - Hyperhidrosis [None]
  - Nausea [None]
  - Contraindicated product administered [None]
  - Product use complaint [None]

NARRATIVE: CASE EVENT DATE: 20231108
